FAERS Safety Report 4839105-X (Version None)
Quarter: 2005Q4

REPORT INFORMATION
  Report Type: 
  Country: None (occurrence: None)
  Receive Date: 20051129
  Receipt Date: 20051117
  Transmission Date: 20060501
  Serious: Yes (Hospitalization)
  Sender: FDA-Public Use
  Company Number: DE-GLAXOSMITHKLINE-B0400043B

PATIENT
  Sex: Female
  Weight: 78 kg

DRUGS (1)
  1. TOPOTECAN [Suspect]
     Indication: OVARIAN CANCER
     Dosage: 14.48MG CUMULATIVE DOSE
     Route: 042
     Dates: start: 20050926, end: 20051108

REACTIONS (1)
  - ASCITES [None]
